FAERS Safety Report 18864423 (Version 1)
Quarter: 2021Q1

REPORT INFORMATION
  Report Type: Report from Study
  Country: IT (occurrence: IT)
  Receive Date: 20210208
  Receipt Date: 20210208
  Transmission Date: 20210420
  Serious: Yes (Hospitalization, Other)
  Sender: FDA-Public Use
  Company Number: IT-PFIZER INC-2021103428

PATIENT
  Age: 50 Year
  Sex: Female

DRUGS (7)
  1. ZONISAMIDE ARISTO [Suspect]
     Active Substance: ZONISAMIDE
     Dosage: UNK
     Route: 048
     Dates: start: 20210112, end: 20210112
  2. EUTIROX [Concomitant]
     Active Substance: LEVOTHYROXINE SODIUM
     Dosage: UNK
  3. FRISIUM [Suspect]
     Active Substance: CLOBAZAM
     Dosage: 300 MG TOTAL
     Route: 048
     Dates: start: 20210112, end: 20210112
  4. ZONEGRAN [Concomitant]
     Active Substance: ZONISAMIDE
     Dosage: UNK
  5. OLANZAPINE. [Concomitant]
     Active Substance: OLANZAPINE
     Dosage: 2.5 MG
  6. TAVOR (LORAZEPAM) [Suspect]
     Active Substance: LORAZEPAM
     Dosage: 36 MG TOTAL
     Route: 048
     Dates: start: 20210112, end: 20210112
  7. VIMPAT [Concomitant]
     Active Substance: LACOSAMIDE
     Dosage: UNK

REACTIONS (4)
  - Sopor [Unknown]
  - Drug abuse [Unknown]
  - Suicide attempt [Unknown]
  - Hypothermia [Unknown]

NARRATIVE: CASE EVENT DATE: 20210112
